FAERS Safety Report 6862579-X (Version None)
Quarter: 2010Q3

REPORT INFORMATION
  Report Type: 
  Country: None (occurrence: None)
  Receive Date: 20100721
  Receipt Date: 20100714
  Transmission Date: 20110219
  Serious: Yes (Death, Hospitalization, Other)
  Sender: FDA-Public Use
  Company Number: PL-ELI_LILLY_AND_COMPANY-PL201007001946

PATIENT
  Sex: Male
  Weight: 54 kg

DRUGS (10)
  1. PEMETREXED [Suspect]
     Indication: NON-SMALL CELL LUNG CANCER
     Dosage: 850 MG, UNKNOWN
     Route: 065
     Dates: start: 20100416
  2. CISPLATIN [Suspect]
     Indication: NON-SMALL CELL LUNG CANCER
     Dosage: 127 MG, UNKNOWN
     Route: 065
     Dates: start: 20100416
  3. OTHER PHARMA COMPANY INV DRUG [Suspect]
     Indication: NON-SMALL CELL LUNG CANCER
     Dosage: 800 MG, UNKNOWN
     Route: 065
     Dates: start: 20100416
  4. NIFUROXAZIDE [Concomitant]
     Indication: DIARRHOEA
     Dates: start: 20100701, end: 20100702
  5. NIFUROXAZIDE [Concomitant]
     Dosage: 8 (4 X 2) D/F, UNK
     Route: 048
     Dates: start: 20100705
  6. LOPERAMIDE [Concomitant]
     Indication: DIARRHOEA
     Dates: start: 20100701, end: 20100702
  7. LOPERAMIDE [Concomitant]
     Dosage: 3 TAB, UNK
     Route: 048
     Dates: start: 20100705
  8. MORPHINE SULFATE [Concomitant]
     Dosage: 2 X 60 MG, UNK
     Dates: start: 20100407
  9. KETONAL [Concomitant]
     Dosage: 2 X 100 MG, UNK
     Route: 048
     Dates: start: 20100623
  10. POLPRAZOL [Concomitant]
     Dosage: 20 MG, UNK
     Route: 048
     Dates: start: 20100623

REACTIONS (4)
  - ANAEMIA [None]
  - GENERAL PHYSICAL HEALTH DETERIORATION [None]
  - PULMONARY OEDEMA [None]
  - SHOCK [None]
